FAERS Safety Report 19904850 (Version 1)
Quarter: 2021Q4

REPORT INFORMATION
  Report Type: Spontaneous
  Country: CA (occurrence: CA)
  Receive Date: 20211001
  Receipt Date: 20211001
  Transmission Date: 20220303
  Serious: Yes (Other)
  Sender: FDA-Public Use
  Company Number: CA-TEVA-2021-CA-1959643

PATIENT
  Sex: Male

DRUGS (1)
  1. PROPOFOL [Suspect]
     Active Substance: PROPOFOL
     Indication: Product used for unknown indication
     Route: 065

REACTIONS (6)
  - Agitation [Unknown]
  - Complication associated with device [Unknown]
  - Discomfort [Unknown]
  - Hypertension [Unknown]
  - Hypoventilation [Unknown]
  - Device infusion issue [Unknown]
